FAERS Safety Report 9693065 (Version 1)
Quarter: 2013Q4

REPORT INFORMATION
  Report Type: Spontaneous
  Country: US (occurrence: None)
  Receive Date: 20131115
  Receipt Date: 20131115
  Transmission Date: 20140711
  Serious: Yes (Hospitalization)
  Sender: FDA-Public Use
  Company Number: None

PATIENT
  Sex: Female

DRUGS (3)
  1. CEFOXITIN [Suspect]
     Indication: PROPHYLAXIS
     Dates: start: 20111206, end: 20111206
  2. CITRUCEL [Concomitant]
  3. CELEBREX [Concomitant]

REACTIONS (4)
  - Fatigue [None]
  - Ocular icterus [None]
  - Jaundice [None]
  - Liver injury [None]
